FAERS Safety Report 8789734 (Version 1)
Quarter: 2012Q4

REPORT INFORMATION
  Report Type: Spontaneous
  Country: US (occurrence: None)
  Receive Date: 20120911
  Receipt Date: 20120911
  Transmission Date: 20130627
  Serious: Yes (Other)
  Sender: FDA-Public Use
  Company Number: None

PATIENT
  Age: 22 Year
  Sex: Female
  Weight: 68.95 kg

DRUGS (1)
  1. SPIRONOLACTONE [Suspect]
     Dosage: 1 Tab by Mouth Dailey
     Route: 048
     Dates: start: 20120806, end: 20120826

REACTIONS (4)
  - Rash [None]
  - Swelling [None]
  - Pruritus [None]
  - Erythema [None]
